FAERS Safety Report 6285114-6 (Version None)
Quarter: 2009Q3

REPORT INFORMATION
  Report Type: 
  Country: None (occurrence: None)
  Receive Date: 20090727
  Receipt Date: 20090720
  Transmission Date: 20100115
  Serious: Yes (Other)
  Sender: FDA-Public Use
  Company Number: DE-PFIZER INC-2009222674

PATIENT

DRUGS (3)
  1. SUTENT [Suspect]
     Route: 048
  2. OPTALIDON N [Concomitant]
  3. IBUPROFEN [Concomitant]

REACTIONS (1)
  - HALLUCINATION [None]
